FAERS Safety Report 23458688 (Version 1)
Quarter: 2024Q1

REPORT INFORMATION
  Report Type: Report from Study
  Country: US (occurrence: US)
  Receive Date: 20240130
  Receipt Date: 20240130
  Transmission Date: 20240409
  Serious: Yes (Other)
  Sender: FDA-Public Use
  Company Number: US-ABBVIE-5420114

PATIENT
  Sex: Female
  Weight: 49 kg

DRUGS (6)
  1. HUMIRA [Suspect]
     Active Substance: ADALIMUMAB
     Indication: Crohn^s disease
     Dosage: LAST ADMIN DATE: 2023, FORM STRENGTH: 40 MG?CITRATE FREE
     Route: 058
     Dates: start: 20230223
  2. PIPERACILLIN AND TAZOBACTAM [Concomitant]
     Active Substance: PIPERACILLIN SODIUM\TAZOBACTAM SODIUM
     Indication: Product used for unknown indication
     Dosage: GREATER THAN OR EQUAL TO 8 MCG/ML SUSCEPTIBLE
  3. TOBRAMYCIN [Concomitant]
     Active Substance: TOBRAMYCIN
     Indication: Product used for unknown indication
     Dosage: GREATER THAN OR EQUAL TO 2 MCG/MT, SUSCEPTIBLE
  4. MEROPENEM [Concomitant]
     Active Substance: MEROPENEM
     Indication: Product used for unknown indication
     Dosage: GREATER THAN OR EQUAL TO 1 MCG/ML SUSCEPTIBLE
  5. GENTAMICIN [Concomitant]
     Active Substance: GENTAMICIN
     Indication: Product used for unknown indication
     Dosage: 4 MCGTML SUSCEPTIBLE
  6. CIPROFLOXACIN [Concomitant]
     Active Substance: CIPROFLOXACIN
     Indication: Product used for unknown indication
     Dosage: GREATER THAN OR EQUAL TO 0.25 MCG/ML SUSCEPTIBLE

REACTIONS (15)
  - Kidney infection [Recovering/Resolving]
  - Flank pain [Unknown]
  - Nephrolithiasis [Unknown]
  - Normocytic anaemia [Unknown]
  - Pyrexia [Unknown]
  - Metabolic acidosis [Not Recovered/Not Resolved]
  - Urinary tract infection [Unknown]
  - Immunodeficiency [Not Recovered/Not Resolved]
  - Hypokalaemia [Unknown]
  - Hyperuricaemia [Not Recovered/Not Resolved]
  - Acute kidney injury [Unknown]
  - Deep vein thrombosis [Not Recovered/Not Resolved]
  - Hepatocellular carcinoma [Unknown]
  - Enterocolonic fistula [Unknown]
  - Hydronephrosis [Unknown]

NARRATIVE: CASE EVENT DATE: 20230101
